FAERS Safety Report 8012316-0 (Version None)
Quarter: 2011Q4

REPORT INFORMATION
  Report Type: 
  Country: None (occurrence: None)
  Receive Date: 20111228
  Receipt Date: 20111223
  Transmission Date: 20120403
  Serious: Yes (Hospitalization)
  Sender: FDA-Public Use
  Company Number: FR-PFIZER INC-2010169000

PATIENT
  Age: 8 Year
  Sex: Female

DRUGS (2)
  1. PEDIATRIC ADVIL [Suspect]
     Indication: EAR INFECTION
     Dosage: 3 DF, 1X/DAY
     Dates: start: 20091201, end: 20090101
  2. PEDIATRIC ADVIL [Suspect]
     Indication: PYREXIA

REACTIONS (2)
  - RENAL TUBULAR DISORDER [None]
  - RENAL FAILURE ACUTE [None]
